FAERS Safety Report 9371359 (Version 1)
Quarter: 2013Q2

REPORT INFORMATION
  Report Type: Spontaneous
  Country: US (occurrence: None)
  Receive Date: 20130626
  Receipt Date: 20130626
  Transmission Date: 20140414
  Serious: Yes (Hospitalization, Disabling)
  Sender: FDA-Public Use
  Company Number: None

PATIENT
  Age: 55 Year
  Sex: Female
  Weight: 56.7 kg

DRUGS (4)
  1. FORTEO (TERIPARATIDE) [Suspect]
     Indication: OSTEOPOROSIS
     Dosage: 20MCG/DOSE?1 SUBQ INJECTION?ONCE DAILY?SUBCUTANEOUS INJECTION
     Route: 058
     Dates: start: 20130315, end: 20130407
  2. AMBIEN 10MG [Concomitant]
  3. MULTI VITAMIN [Concomitant]
  4. CALCIUM 1200MG/VIT D 400 IU [Concomitant]

REACTIONS (9)
  - Abdominal pain [None]
  - Decreased appetite [None]
  - Asthenia [None]
  - Palpitations [None]
  - Eating disorder [None]
  - Migraine [None]
  - Nausea [None]
  - Impaired driving ability [None]
  - Impaired work ability [None]
